FAERS Safety Report 9831889 (Version 3)
Quarter: 2014Q2

REPORT INFORMATION
  Report Type: Spontaneous
  Country: US (occurrence: US)
  Receive Date: 20140121
  Receipt Date: 20140527
  Transmission Date: 20141212
  Serious: No
  Sender: FDA-Public Use
  Company Number: US-PFIZER INC-2014016913

PATIENT
  Age: 48 Year
  Sex: Female
  Weight: 73 kg

DRUGS (3)
  1. LEVOXYL [Suspect]
     Indication: HYPOTHYROIDISM
     Dosage: 75 UG (1 AND HALF TABLET OF 50MCG), 1X/DAY
     Route: 048
     Dates: end: 201307
  2. LEVOXYL [Suspect]
     Dosage: 75 MG, UNK
     Route: 048
     Dates: start: 201311, end: 201311
  3. LEVOXYL [Suspect]
     Dosage: 88 MG, UNK
     Route: 048

REACTIONS (2)
  - Ear disorder [Unknown]
  - Palpitations [Recovered/Resolved]
